FAERS Safety Report 6716197-4 (Version None)
Quarter: 2010Q2

REPORT INFORMATION
  Report Type: 
  Country: None (occurrence: None)
  Receive Date: 20100507
  Receipt Date: 20100429
  Transmission Date: 20101027
  Serious: Yes (Hospitalization)
  Sender: FDA-Public Use
  Company Number: IT-ABBOTT-10P-083-0617219-00

PATIENT
  Sex: Female
  Weight: 52 kg

DRUGS (2)
  1. HUMIRA [Suspect]
     Indication: CROHN'S DISEASE
     Route: 058
     Dates: start: 20090707, end: 20091112
  2. LOPEMID [Concomitant]
     Indication: DIARRHOEA
     Dates: start: 20090611

REACTIONS (1)
  - CROHN'S DISEASE [None]
